FAERS Safety Report 22048743 (Version 3)
Quarter: 2023Q1

REPORT INFORMATION
  Report Type: Report from Study
  Country: JP (occurrence: JP)
  Receive Date: 20230301
  Receipt Date: 20230324
  Transmission Date: 20230418
  Serious: Yes (Death, Other)
  Sender: FDA-Public Use
  Company Number: JP-TAKEDA-2023TJP002658

PATIENT
  Age: 73 Year
  Sex: Male

DRUGS (1)
  1. CABOMETYX [Suspect]
     Active Substance: CABOZANTINIB S-MALATE
     Indication: Renal cell carcinoma stage III
     Dosage: 40 MG, QD
     Route: 048
     Dates: start: 20230127, end: 20230223

REACTIONS (1)
  - Gallbladder enlargement [Fatal]

NARRATIVE: CASE EVENT DATE: 20230220
